FAERS Safety Report 4455699-0 (Version None)
Quarter: 2004Q3

REPORT INFORMATION
  Report Type: 
  Country: None (occurrence: None)
  Receive Date: 20040917
  Receipt Date: 20040908
  Transmission Date: 20050211
  Serious: Yes (Death, Hospitalization)
  Sender: FDA-Public Use
  Company Number: 2004232879SE

PATIENT
  Age: 78 Year
  Sex: Female

DRUGS (1)
  1. FRAGMIN [Suspect]
     Indication: ANGINA PECTORIS
     Dosage: 25000 IU/ML, 6 DAYS
     Dates: start: 20040506, end: 20040511

REACTIONS (2)
  - CEREBRAL HAEMORRHAGE [None]
  - DEPRESSED LEVEL OF CONSCIOUSNESS [None]
